FAERS Safety Report 16410572 (Version 1)
Quarter: 2019Q3

REPORT INFORMATION
  Report Type: Spontaneous
  Country: US (occurrence: US)
  Receive Date: 20190608
  Receipt Date: 20190608
  Transmission Date: 20191004
  Serious: Yes (Other)
  Sender: FDA-Public Use
  Company Number: None

PATIENT
  Age: 68 Year
  Sex: Male
  Weight: 96.75 kg

DRUGS (14)
  1. 5 HTP [Concomitant]
  2. PANTETHINE [Concomitant]
     Active Substance: PANTETHINE
  3. SAW PALMETTO [Concomitant]
     Active Substance: HERBALS\SAW PALMETTO
  4. COPPER [Concomitant]
     Active Substance: COPPER
  5. MAGNESIUM [Concomitant]
     Active Substance: MAGNESIUM
  6. LISINOPRIL. [Concomitant]
     Active Substance: LISINOPRIL
  7. QUERCETIN [Concomitant]
     Active Substance: QUERCETIN
  8. K2 [Concomitant]
     Active Substance: JWH-018
  9. PROBIOTIC [Concomitant]
     Active Substance: PROBIOTICS NOS
  10. ZINC. [Concomitant]
     Active Substance: ZINC
  11. SMZ/TMP DS [Suspect]
     Active Substance: SULFAMETHOXAZOLE\TRIMETHOPRIM
     Indication: INFECTED DERMAL CYST
     Dosage: ?          QUANTITY:20 TABLET(S);?
     Route: 048
     Dates: start: 20190502, end: 20190508
  12. MILK THISTLE [Concomitant]
     Active Substance: DIETARY SUPPLEMENT\HERBALS\MILK THISTLE
  13. GINKGO BILOBA [Concomitant]
     Active Substance: GINKGO
  14. VITAMINS [Concomitant]
     Active Substance: VITAMINS

REACTIONS (1)
  - Meningitis [None]

NARRATIVE: CASE EVENT DATE: 20190507
